FAERS Safety Report 9105417 (Version 1)
Quarter: 2013Q1

REPORT INFORMATION
  Report Type: Spontaneous
  Country: US (occurrence: US)
  Receive Date: 20130220
  Receipt Date: 20130220
  Transmission Date: 20140127
  Serious: No
  Sender: FDA-Public Use
  Company Number: US-009507513-1302USA001953

PATIENT
  Sex: Female

DRUGS (5)
  1. LISINOPRIL [Suspect]
     Dosage: UNK
     Route: 048
     Dates: end: 201202
  2. LIPITOR [Suspect]
  3. ZETIA [Concomitant]
     Dosage: 10 MG ONCE DAILY
     Route: 048
     Dates: start: 201202
  4. LATUDA [Concomitant]
     Dosage: 120 MG ONCE DAILY
  5. BYSTOLIC [Concomitant]
     Dosage: 10 MG ONCE DAILY
     Dates: start: 20130124

REACTIONS (1)
  - Rash generalised [Recovered/Resolved]
